FAERS Safety Report 6113024-3 (Version None)
Quarter: 2009Q1

REPORT INFORMATION
  Report Type: 
  Country: None (occurrence: None)
  Receive Date: 20090312
  Receipt Date: 20090305
  Transmission Date: 20090719
  Serious: Yes (Other)
  Sender: FDA-Public Use
  Company Number: B0563387A

PATIENT
  Age: 21 Year
  Sex: Female

DRUGS (1)
  1. MALARONE [Suspect]
     Route: 048

REACTIONS (2)
  - HEADACHE [None]
  - VISUAL IMPAIRMENT [None]
